FAERS Safety Report 4816523-7 (Version None)
Quarter: 2005Q4

REPORT INFORMATION
  Report Type: 
  Country: None (occurrence: None)
  Receive Date: 20051101
  Receipt Date: 20050930
  Transmission Date: 20060501
  Serious: Yes (Other)
  Sender: FDA-Public Use
  Company Number: PHRM2005FR02599

PATIENT
  Age: 33 Year
  Sex: Female

DRUGS (1)
  1. METHERGINE [Suspect]
     Indication: METRORRHAGIA
     Dosage: 5 TO 6 DROPS/DAY
     Route: 048
     Dates: start: 20041116, end: 20041123

REACTIONS (7)
  - ABORTION INDUCED [None]
  - CONGENITAL TRICUSPID VALVE ATRESIA [None]
  - DRUG EXPOSURE DURING PREGNANCY [None]
  - HEART DISEASE CONGENITAL [None]
  - SPINE MALFORMATION [None]
  - VENTRICULAR HYPOPLASIA [None]
  - VENTRICULAR SEPTAL DEFECT [None]
